FAERS Safety Report 4445060-7 (Version None)
Quarter: 2004Q3

REPORT INFORMATION
  Report Type: 
  Country: None (occurrence: None)
  Receive Date: 20040907
  Receipt Date: 20040823
  Transmission Date: 20050211
  Serious: Yes (Hospitalization)
  Sender: FDA-Public Use
  Company Number: 04P-087-0270005-00

PATIENT
  Age: 69 Year
  Sex: Male

DRUGS (7)
  1. TASMOLIN (AKINETON) (BIPERIDEN) (BIPERIDEN) [Suspect]
     Indication: DRUG USE FOR UNKNOWN INDICATION
     Dosage: 3 MG, 1 IN 1 D, PER ORAL
     Route: 048
     Dates: start: 20040210, end: 20040421
  2. LODOPIN (ZOTEPINE) [Suspect]
     Indication: SCHIZOPHRENIA
     Dosage: 100 MG, 3 IN 1 D, PER ORAL
     Route: 048
     Dates: start: 20031222, end: 20040421
  3. QUETIAPINE [Suspect]
     Indication: SCHIZOPHRENIA
     Dosage: 100 MG, 3 IN 1 D, PER ORAL
     Route: 048
     Dates: start: 20031022, end: 20040421
  4. RISPERIDONE [Suspect]
     Indication: SCHIZOPHRENIA
     Dosage: 1 MG, 3 IN 1 D, PER ORAL
     Route: 048
     Dates: start: 20040210, end: 20040421
  5. FLUNITRAZEPAM [Suspect]
     Indication: DRUG USE FOR UNKNOWN INDICATION
     Dosage: 2 MG, 1 IN 1 D, PER ORAL
     Route: 048
     Dates: start: 20031022, end: 20040421
  6. VEGETAMIN [Suspect]
     Indication: DRUG USE FOR UNKNOWN INDICATION
     Dosage: PER ORAL
     Route: 048
     Dates: start: 20031022, end: 20040421
  7. OLANZAPINE [Concomitant]

REACTIONS (5)
  - DEPRESSED LEVEL OF CONSCIOUSNESS [None]
  - HEPATIC FUNCTION ABNORMAL [None]
  - HYPOGLYCAEMIA [None]
  - PNEUMONIA ASPIRATION [None]
  - PROTEIN TOTAL DECREASED [None]
